FAERS Safety Report 23982194 (Version 1)
Quarter: 2024Q2

REPORT INFORMATION
  Report Type: Spontaneous
  Country: US (occurrence: None)
  Receive Date: 20240616
  Receipt Date: 20240616
  Transmission Date: 20240716
  Serious: Yes (Life-Threatening, Hospitalization, Disabling, Other)
  Sender: FDA-Public Use
  Company Number: None

PATIENT
  Age: 60 Year
  Sex: Female
  Weight: 77.4 kg

DRUGS (1)
  1. KEYTRUDA [Suspect]
     Active Substance: PEMBROLIZUMAB
     Indication: Malignant melanoma
     Dates: start: 20231006, end: 20231205

REACTIONS (11)
  - Dyspnoea [None]
  - Infusion related reaction [None]
  - Pneumonitis [None]
  - Raynaud^s phenomenon [None]
  - Extremity necrosis [None]
  - Finger amputation [None]
  - Adrenal insufficiency [None]
  - Diabetes mellitus inadequate control [None]
  - Myositis [None]
  - Ataxia [None]
  - Visual impairment [None]

NARRATIVE: CASE EVENT DATE: 20231204
